FAERS Safety Report 16607537 (Version 1)
Quarter: 2019Q3

REPORT INFORMATION
  Report Type: Spontaneous
  Country: CA (occurrence: CA)
  Receive Date: 20190722
  Receipt Date: 20190722
  Transmission Date: 20191004
  Serious: Yes (Other)
  Sender: FDA-Public Use
  Company Number: CA-AUROBINDO-AUR-APL-2019-041039

PATIENT

DRUGS (6)
  1. PAROXETINE. [Suspect]
     Active Substance: PAROXETINE
     Indication: AGORAPHOBIA
  2. PAROXETINE TABLET [Suspect]
     Active Substance: PAROXETINE
     Indication: PANIC DISORDER
     Dosage: UNK
     Route: 065
  3. PAROXETINE TABLET [Suspect]
     Active Substance: PAROXETINE
     Indication: AGORAPHOBIA
  4. FLUOXETINE [Suspect]
     Active Substance: FLUOXETINE HYDROCHLORIDE
     Indication: PANIC DISORDER
     Dosage: 10 MILLIGRAM, ONCE A DAY
     Route: 065
  5. FLUOXETINE [Suspect]
     Active Substance: FLUOXETINE HYDROCHLORIDE
     Indication: AGORAPHOBIA
     Dosage: 20 MILLIGRAM, ONCE A DAY
     Route: 065
  6. PAROXETINE. [Suspect]
     Active Substance: PAROXETINE
     Indication: PANIC DISORDER
     Dosage: 10 MILLIGRAM, ONCE A DAY
     Route: 065

REACTIONS (2)
  - Cyclothymic disorder [Recovering/Resolving]
  - Drug withdrawal syndrome [Recovering/Resolving]
